FAERS Safety Report 9874705 (Version 1)
Quarter: 2014Q1

REPORT INFORMATION
  Report Type: Spontaneous
  Country: US (occurrence: None)
  Receive Date: 20140205
  Receipt Date: 20140205
  Transmission Date: 20141002
  Serious: Yes (Disabling)
  Sender: FDA-Public Use
  Company Number: None

PATIENT
  Age: 63 Year
  Sex: Male
  Weight: 108.86 kg

DRUGS (14)
  1. HYDROCODON-ACETAMINOPHN 10-325 GENERIC FOR NORCO QUALITES [Suspect]
     Indication: TINNITUS
     Route: 048
     Dates: start: 20140109
  2. HYDROCODON [Concomitant]
  3. ACETAMINOPHN [Concomitant]
  4. FENTANYL TRANSDERMAL SYSTEM [Concomitant]
  5. NATURE MADE CALCIUM W/D3 [Concomitant]
  6. EQUATE ONE DAILY MEN^S HEALTH [Concomitant]
  7. MELATONIN [Concomitant]
  8. EQUATE STOOL SOFTENER [Concomitant]
  9. ESCITALOPRAM [Concomitant]
  10. PREDNISONE [Concomitant]
  11. ALPRAZOLAM [Concomitant]
  12. SYNTHROID [Concomitant]
  13. TAMSULOSIN [Concomitant]
  14. CRESTOR [Concomitant]

REACTIONS (2)
  - Drug ineffective [None]
  - Product substitution issue [None]
